FAERS Safety Report 4540849-8 (Version None)
Quarter: 2004Q4

REPORT INFORMATION
  Report Type: 
  Country: None (occurrence: None)
  Receive Date: 20041229
  Receipt Date: 20041215
  Transmission Date: 20050328
  Serious: Yes (Other)
  Sender: FDA-Public Use
  Company Number: FR-BRISTOL-MYERS SQUIBB COMPANY-12808234

PATIENT
  Age: 25 Year
  Sex: Female

DRUGS (3)
  1. ENDOXAN [Suspect]
     Indication: BREAST CANCER
     Dosage: INITIATED JUL-2004
     Route: 042
     Dates: start: 20040901, end: 20040901
  2. FARMORUBICIN [Suspect]
     Indication: BREAST CANCER
     Dosage: INITIATED JUL-2004
     Route: 042
     Dates: start: 20040901, end: 20040901
  3. FLUOROURACIL [Suspect]
     Indication: BREAST CANCER
     Route: 042
     Dates: start: 20040901, end: 20040901

REACTIONS (3)
  - DRUG EXPOSURE DURING PREGNANCY [None]
  - INDUCED LABOUR [None]
  - PREMATURE LABOUR [None]
